FAERS Safety Report 8495622-5 (Version None)
Quarter: 2012Q3

REPORT INFORMATION
  Report Type: 
  Country: None (occurrence: None)
  Receive Date: 20120709
  Receipt Date: 20120628
  Transmission Date: 20120928
  Serious: Yes (Other)
  Sender: FDA-Public Use
  Company Number: GB-ROCHE-1083002

PATIENT
  Age: 53 Year
  Sex: Female

DRUGS (2)
  1. RITUXIMAB [Suspect]
     Indication: RHEUMATOID ARTHRITIS
     Route: 042
  2. METHOTREXATE [Concomitant]

REACTIONS (3)
  - PHARYNGEAL HYPOAESTHESIA [None]
  - BODY TEMPERATURE INCREASED [None]
  - PRURITUS [None]
